FAERS Safety Report 7299033-X (Version None)
Quarter: 2011Q1

REPORT INFORMATION
  Report Type: 
  Country: None (occurrence: None)
  Receive Date: 20110208
  Receipt Date: 20110201
  Transmission Date: 20110831
  Serious: Yes (Death)
  Sender: FDA-Public Use
  Company Number: 021537

PATIENT
  Sex: Female
  Weight: 60 kg

DRUGS (6)
  1. ASPIRIN [Concomitant]
  2. LEVOTHYROXINE SODIUM [Concomitant]
  3. FURORESE /00032601/ [Concomitant]
  4. LYRICA [Concomitant]
  5. NEUPRO [Suspect]
     Dosage: (1 MG 1X/24 HOURS)
     Dates: start: 20101027
  6. VERAPAMIL [Concomitant]

REACTIONS (5)
  - PNEUMONIA [None]
  - ILEUS [None]
  - HYPOKALAEMIA [None]
  - CHRONIC OBSTRUCTIVE PULMONARY DISEASE [None]
  - DIABETES MELLITUS INADEQUATE CONTROL [None]
